FAERS Safety Report 14287966 (Version 9)
Quarter: 2018Q2

REPORT INFORMATION
  Report Type: Spontaneous
  Country: US (occurrence: US)
  Receive Date: 20171214
  Receipt Date: 20180626
  Transmission Date: 20180711
  Serious: Yes (Congenital Anomaly, Other)
  Sender: FDA-Public Use
  Company Number: PHEH2017US039766

PATIENT
  Sex: Female

DRUGS (3)
  1. ZOFRAN [Suspect]
     Active Substance: ONDANSETRON HYDROCHLORIDE
     Indication: FOETAL EXPOSURE DURING PREGNANCY
     Dosage: MOTHER^S DOSE: 1 DF, Q8H (AS NEEDED)
     Route: 064
  2. ONDANSETRONE RANBAXY [Suspect]
     Active Substance: ONDANSETRON HYDROCHLORIDE
     Indication: FOETAL EXPOSURE DURING PREGNANCY
     Dosage: MOTHER^S DOSE: 4 MG, Q8H (AS NEEDED)
     Route: 064
  3. ONDANSETRON [Suspect]
     Active Substance: ONDANSETRON
     Indication: FOETAL EXPOSURE DURING PREGNANCY
     Dosage: MOTHER^S DOSE: 4 MG, Q8H (AS NEEDED)
     Route: 064

REACTIONS (38)
  - Left atrial dilatation [Unknown]
  - Foetal exposure during pregnancy [Unknown]
  - Upper respiratory tract infection [Recovered/Resolved]
  - Cardiomegaly [Recovered/Resolved]
  - Pyrexia [Recovered/Resolved]
  - Tachypnoea [Unknown]
  - Left ventricular dilatation [Unknown]
  - Angioedema [Unknown]
  - Laevocardia [Unknown]
  - Tachycardia foetal [Unknown]
  - Jaundice neonatal [Recovered/Resolved]
  - Atrial tachycardia [Unknown]
  - Ventricular septal defect [Unknown]
  - Cardiac murmur [Unknown]
  - Rhinorrhoea [Unknown]
  - Decreased appetite [Unknown]
  - Dyspnoea [Unknown]
  - Cutaneous calcification [Recovered/Resolved]
  - Viral upper respiratory tract infection [Unknown]
  - Premature baby [Unknown]
  - Weight decrease neonatal [Unknown]
  - Sinus tachycardia [Unknown]
  - Failure to thrive [Unknown]
  - Hyperbilirubinaemia neonatal [Recovered/Resolved]
  - Nasal congestion [Unknown]
  - Febrile convulsion [Unknown]
  - Left-to-right cardiac shunt [Unknown]
  - Developmental delay [Unknown]
  - Foetal arrhythmia [Unknown]
  - Urinary retention [Unknown]
  - Poor feeding infant [Recovered/Resolved]
  - Gastrooesophageal reflux disease [Recovered/Resolved]
  - Speech disorder [Unknown]
  - Injury [Unknown]
  - Staring [Unknown]
  - Language disorder [Unknown]
  - Ankyloglossia congenital [Unknown]
  - Pain [Unknown]
